FAERS Safety Report 6885175-7 (Version None)
Quarter: 2010Q3

REPORT INFORMATION
  Report Type: 
  Country: None (occurrence: None)
  Receive Date: 20100729
  Receipt Date: 20100729
  Transmission Date: 20110219
  Serious: Yes (Other)
  Sender: FDA-Public Use
  Company Number: None

PATIENT
  Age: 57 Year
  Sex: Male
  Weight: 87.5442 kg

DRUGS (1)
  1. TALWIN NX [Suspect]

REACTIONS (3)
  - DEPRESSION [None]
  - ECONOMIC PROBLEM [None]
  - SPINAL FUSION SURGERY [None]
